FAERS Safety Report 7405982-1 (Version None)
Quarter: 2011Q2

REPORT INFORMATION
  Report Type: 
  Country: None (occurrence: None)
  Receive Date: 20110406
  Receipt Date: 20110406
  Transmission Date: 20111010
  Serious: No
  Sender: FDA-Public Use
  Company Number: None

PATIENT
  Sex: Female

DRUGS (1)
  1. ZOLPIDEM [Suspect]
     Indication: INSOMNIA
     Dosage: 10MG BEDTIME PO
     Route: 048
     Dates: start: 20110401, end: 20110402

REACTIONS (3)
  - NAUSEA [None]
  - HEADACHE [None]
  - NIGHTMARE [None]
